FAERS Safety Report 23979843 (Version 13)
Quarter: 2025Q2

REPORT INFORMATION
  Report Type: Spontaneous
  Country: IN (occurrence: IN)
  Receive Date: 20240617
  Receipt Date: 20250515
  Transmission Date: 20250717
  Serious: Yes (Hospitalization, Other)
  Sender: PFIZER
  Company Number: IN-PFIZER INC-PV202400077041

PATIENT
  Age: 78 Year
  Sex: Female
  Weight: 59.9 kg

DRUGS (6)
  1. LORLATINIB [Suspect]
     Active Substance: LORLATINIB
     Indication: Lung adenocarcinoma
     Dosage: 100 MG, 1X/DAY
     Route: 048
     Dates: start: 20240429, end: 20240820
  2. LORLATINIB [Suspect]
     Active Substance: LORLATINIB
     Dosage: 75 MG, 1X/DAY
     Route: 048
     Dates: start: 20240829
  3. LORLATINIB [Suspect]
     Active Substance: LORLATINIB
     Dosage: 50 MG, 1X/DAY
     Route: 048
     Dates: start: 202411
  4. NULONG [Concomitant]
     Indication: Hypertension
     Dosage: 5 MG, 1X/DAY
  5. NEBIVOLOL HYDROCHLORIDE [Concomitant]
     Active Substance: NEBIVOLOL HYDROCHLORIDE
     Indication: Hypertension
     Dosage: 2.5, 1 A DAY
  6. ATORVASTATIN\FENOFIBRATE [Concomitant]
     Active Substance: ATORVASTATIN\FENOFIBRATE
     Indication: Blood cholesterol abnormal
     Dosage: 5, 1 EVERY ALTERNATE DAY

REACTIONS (17)
  - Neutropenia [Recovered/Resolved with Sequelae]
  - Thrombocytopenia [Recovered/Resolved with Sequelae]
  - Oxygen saturation decreased [Recovered/Resolved with Sequelae]
  - Pyrexia [Recovered/Resolved with Sequelae]
  - Hallucination [Recovering/Resolving]
  - Cerebral small vessel ischaemic disease [Unknown]
  - Fear [Not Recovered/Not Resolved]
  - Oedema peripheral [Not Recovered/Not Resolved]
  - Fatigue [Unknown]
  - Sluggishness [Unknown]
  - Low density lipoprotein increased [Unknown]
  - Cough [Unknown]
  - Glycosylated haemoglobin increased [Unknown]
  - Productive cough [Unknown]
  - Wheezing [Unknown]
  - Blood pressure increased [Unknown]
  - Blood triglycerides increased [Unknown]

NARRATIVE: CASE EVENT DATE: 20240101
